FAERS Safety Report 8435638-8 (Version None)
Quarter: 2012Q2

REPORT INFORMATION
  Report Type: 
  Country: None (occurrence: None)
  Receive Date: 20120614
  Receipt Date: 20120607
  Transmission Date: 20120825
  Serious: Yes (Other)
  Sender: FDA-Public Use
  Company Number: US-PFIZER INC-2012001398

PATIENT
  Sex: Female
  Weight: 81.6 kg

DRUGS (4)
  1. PREMARIN [Suspect]
     Indication: MENOPAUSAL SYMPTOMS
     Dosage: 0.3 MG, DAILY
  2. PREMPRO [Suspect]
     Indication: HOT FLUSH
  3. PREMARIN [Suspect]
     Indication: HOT FLUSH
  4. PREMPRO [Suspect]
     Indication: MENOPAUSAL SYMPTOMS
     Dosage: 0.3 MG, DAILY

REACTIONS (5)
  - INSOMNIA [None]
  - HOT FLUSH [None]
  - HYPERHIDROSIS [None]
  - HAEMORRHAGE [None]
  - ACTIVITIES OF DAILY LIVING IMPAIRED [None]
